FAERS Safety Report 16354654 (Version 1)
Quarter: 2019Q2

REPORT INFORMATION
  Report Type: Spontaneous
  Country: US (occurrence: US)
  Receive Date: 20190524
  Receipt Date: 20190524
  Transmission Date: 20190711
  Serious: Yes (Hospitalization, Other)
  Sender: FDA-Public Use
  Company Number: US-TARO-2019TAR00393

PATIENT
  Age: 81 Year
  Sex: Female
  Weight: 86.17 kg

DRUGS (3)
  1. WARFARIN SODIUM TABLETS USP 5MG [Suspect]
     Active Substance: WARFARIN SODIUM
     Indication: THROMBOSIS
     Dosage: 2.5 MG, 1X/DAY AT NIGHT
     Route: 048
     Dates: start: 1999
  2. UNSPECIFIED ANTIBIOTIC [Suspect]
     Active Substance: UNSPECIFIED INGREDIENT
     Dosage: UNK
     Dates: start: 201901, end: 201905
  3. LASIX [Concomitant]
     Active Substance: FUROSEMIDE
     Dosage: 40 MG, 1X/DAY

REACTIONS (14)
  - Blood potassium decreased [Not Recovered/Not Resolved]
  - Bradycardia [Recovered/Resolved]
  - Polyp [Unknown]
  - Feeling abnormal [Not Recovered/Not Resolved]
  - Drug ineffective [Recovered/Resolved]
  - Internal haemorrhage [Unknown]
  - International normalised ratio increased [Recovered/Resolved]
  - Haematochezia [Unknown]
  - Fluid retention [Not Recovered/Not Resolved]
  - Anaemia [Recovered/Resolved]
  - Drug interaction [Unknown]
  - Asthenia [Not Recovered/Not Resolved]
  - Hypotension [Unknown]
  - Anticoagulation drug level below therapeutic [Unknown]

NARRATIVE: CASE EVENT DATE: 2019
